FAERS Safety Report 4445586-6 (Version None)
Quarter: 2004Q3

REPORT INFORMATION
  Report Type: 
  Country: None (occurrence: None)
  Receive Date: 20040910
  Receipt Date: 20030324
  Transmission Date: 20050211
  Serious: Yes (Life-Threatening, Hospitalization)
  Sender: FDA-Public Use
  Company Number: US-BRISTOL-MYERS SQUIBB COMPANY-12207015

PATIENT
  Age: 80 Year
  Sex: Female
  Weight: 55 kg

DRUGS (6)
  1. CISPLATIN [Suspect]
     Indication: SQUAMOUS CELL CARCINOMA
     Dosage: THERAPY DATES: 05 TO 27-JUL-1995
     Route: 042
     Dates: start: 19950727, end: 19950727
  2. TAXOL [Suspect]
     Indication: SQUAMOUS CELL CARCINOMA
     Dosage: THERAPY DATES: 05 TO 27-JUL-1995
     Route: 042
     Dates: start: 19950727, end: 19950727
  3. CETUXIMAB [Suspect]
     Indication: SQUAMOUS CELL CARCINOMA
     Route: 042
     Dates: start: 19950629, end: 19950706
  4. COMPAZINE [Concomitant]
     Dates: start: 19950726
  5. DEXAMETHASONE [Concomitant]
     Dates: start: 19950726
  6. VITAMINS MULTIPLE [Concomitant]

REACTIONS (2)
  - ATRIAL FIBRILLATION [None]
  - FEBRILE NEUTROPENIA [None]
